FAERS Safety Report 5016906-9 (Version None)
Quarter: 2006Q2

REPORT INFORMATION
  Report Type: 
  Country: None (occurrence: None)
  Receive Date: 20060526
  Receipt Date: 20060512
  Transmission Date: 20061013
  Serious: Yes (Hospitalization)
  Sender: FDA-Public Use
  Company Number: 2006SP002035

PATIENT
  Age: 86 Year
  Sex: Female

DRUGS (1)
  1. LUNESTA [Suspect]
     Indication: INSOMNIA
     Dosage: HS; ORAL
     Route: 048
     Dates: start: 20060501, end: 20060501

REACTIONS (6)
  - DEPRESSION [None]
  - FALL [None]
  - INSOMNIA [None]
  - OVERDOSE [None]
  - POLYTRAUMATISM [None]
  - SUICIDE ATTEMPT [None]
